FAERS Safety Report 22101587 (Version 3)
Quarter: 2023Q1

REPORT INFORMATION
  Report Type: Spontaneous
  Country: KR (occurrence: KR)
  Receive Date: 20230316
  Receipt Date: 20230324
  Transmission Date: 20230417
  Serious: Yes (Hospitalization, Other)
  Sender: FDA-Public Use
  Company Number: KR-CELLTRION INC.-2023KR005192

PATIENT

DRUGS (3)
  1. HERZUMA [Suspect]
     Active Substance: TRASTUZUMAB-PKRB
     Indication: Rectal cancer
     Dosage: 8MG/KG IV LOADING, 6MG/KG IV EVERY 3 WEEKS
     Route: 042
     Dates: start: 20230130, end: 20230305
  2. NERATINIB [Suspect]
     Active Substance: NERATINIB
     Indication: Rectal cancer
     Dosage: 240 MG, QD
     Route: 048
     Dates: start: 20230130, end: 20230305
  3. LIPITOR [Concomitant]
     Active Substance: ATORVASTATIN CALCIUM
     Indication: Hyperlipidaemia
     Dosage: 10 MG, QD
     Route: 048
     Dates: start: 202103

REACTIONS (4)
  - Dyspnoea exertional [Recovered/Resolved]
  - Dyspnoea [Recovered/Resolved]
  - Pleural effusion [Unknown]
  - Off label use [Unknown]

NARRATIVE: CASE EVENT DATE: 20230306
